FAERS Safety Report 14682459 (Version 2)
Quarter: 2018Q2

REPORT INFORMATION
  Report Type: Spontaneous
  Country: MY (occurrence: MY)
  Receive Date: 20180326
  Receipt Date: 20180405
  Transmission Date: 20180711
  Serious: Yes (Other)
  Sender: FDA-Public Use
  Company Number: MY-BEH-2018089116

PATIENT
  Weight: 1.8 kg

DRUGS (10)
  1. HUMAN IMMUNOGLOBULIN (NC) [Suspect]
     Active Substance: HUMAN IMMUNOGLOBULIN G
     Indication: PRODUCT USED FOR UNKNOWN INDICATION
     Route: 064
  2. CARDIPRIN                          /00002701/ [Suspect]
     Active Substance: ASPIRIN
     Route: 064
  3. TINZAPARIN SODIUM [Suspect]
     Active Substance: TINZAPARIN SODIUM
     Route: 064
  4. HYDROXYCHLOROQUINE                 /00072603/ [Suspect]
     Active Substance: HYDROXYCHLOROQUINE SULFATE
     Route: 064
  5. CLARITHROMYCIN. [Suspect]
     Active Substance: CLARITHROMYCIN
     Route: 064
  6. CIPROFLOXACIN                      /00697202/ [Suspect]
     Active Substance: CIPROFLOXACIN HYDROCHLORIDE
     Route: 064
  7. IMIPENEM [Suspect]
     Active Substance: IMIPENEM
     Route: 064
  8. MEROPENEM                          /01250502/ [Suspect]
     Active Substance: MEROPENEM
     Route: 064
  9. METHYLPREDNISOLONE. [Suspect]
     Active Substance: METHYLPREDNISOLONE
     Route: 064
  10. TAZOCIN EF [Suspect]
     Active Substance: PIPERACILLIN SODIUM\TAZOBACTAM SODIUM
     Route: 064

REACTIONS (1)
  - Foetal distress syndrome [Recovered/Resolved]
